FAERS Safety Report 6252115-3 (Version None)
Quarter: 2009Q2

REPORT INFORMATION
  Report Type: 
  Country: None (occurrence: None)
  Receive Date: 20090630
  Receipt Date: 20070601
  Transmission Date: 20091009
  Serious: Yes (Hospitalization)
  Sender: FDA-Public Use
  Company Number: US-ROCHE-639068

PATIENT
  Sex: Male

DRUGS (7)
  1. ENFUVIRTIDE [Suspect]
     Indication: HIV INFECTION
     Route: 065
     Dates: start: 20060517, end: 20080814
  2. EPIVIR [Concomitant]
     Dosage: FREQ: QD
     Dates: start: 20060517, end: 20070621
  3. KALETRA [Concomitant]
     Dates: start: 20060517, end: 20070621
  4. VIDEX EC [Concomitant]
     Dosage: FREQ: QD
     Dates: start: 20060517, end: 20070621
  5. NORVIR [Concomitant]
     Dates: start: 20070621, end: 20080814
  6. PREZISTA [Concomitant]
     Dates: start: 20070621, end: 20080814
  7. TRUVADA [Concomitant]
     Dosage: FREQ: QD
     Dates: start: 20070621, end: 20080814

REACTIONS (1)
  - DEHYDRATION [None]
